FAERS Safety Report 12333013 (Version 1)
Quarter: 2016Q2

REPORT INFORMATION
  Report Type: Spontaneous
  Country: US (occurrence: US)
  Receive Date: 20160504
  Receipt Date: 20160504
  Transmission Date: 20160815
  Serious: No
  Sender: FDA-Public Use
  Company Number: US-ROCHE-ITM201505IM015350

PATIENT
  Sex: Female
  Weight: 77.18 kg

DRUGS (3)
  1. ESBRIET [Suspect]
     Active Substance: PIRFENIDONE
     Dosage: 2 CAPSULES AT 4 AM, 3 CAPSULES 8:30AM, 2 CAPSULES 12:30AM, 2 CAPSULES 4:30 PM
     Route: 048
  2. ESBRIET [Suspect]
     Active Substance: PIRFENIDONE
     Indication: IDIOPATHIC PULMONARY FIBROSIS
     Dosage: 9 CAPSULES PER DAY.
     Route: 048
     Dates: start: 20150504
  3. ESBRIET [Suspect]
     Active Substance: PIRFENIDONE
     Dosage: 6 CAPSULES PER DAY
     Route: 048

REACTIONS (9)
  - Flushing [Unknown]
  - Feeling hot [Unknown]
  - Feeling abnormal [Unknown]
  - Pruritus [Unknown]
  - Dizziness [Unknown]
  - Nausea [Not Recovered/Not Resolved]
  - Fatigue [Unknown]
  - Medication error [Unknown]
  - Gastroenteritis viral [Unknown]
